FAERS Safety Report 12920106 (Version 1)
Quarter: 2016Q4

REPORT INFORMATION
  Report Type: Spontaneous
  Country: LT (occurrence: LT)
  Receive Date: 20161107
  Receipt Date: 20161107
  Transmission Date: 20170207
  Serious: Yes (Hospitalization)
  Sender: FDA-Public Use
  Company Number: LT-ELI_LILLY_AND_COMPANY-LT201611001150

PATIENT
  Age: 58 Year
  Sex: Male
  Weight: 76 kg

DRUGS (1)
  1. ERBITUX [Suspect]
     Active Substance: CETUXIMAB
     Indication: HEAD AND NECK CANCER
     Dosage: UNK UNK, UNKNOWN
     Route: 042

REACTIONS (8)
  - Dyspnoea [Recovered/Resolved]
  - Electrocardiogram ST segment elevation [Unknown]
  - Coronary artery stenosis [Unknown]
  - Pharyngeal oedema [Recovered/Resolved]
  - Troponin increased [Unknown]
  - Arterial injury [Unknown]
  - Blood pressure decreased [Recovered/Resolved]
  - Face oedema [Recovered/Resolved]

NARRATIVE: CASE EVENT DATE: 20161019
